FAERS Safety Report 17003398 (Version 1)
Quarter: 2019Q4

REPORT INFORMATION
  Report Type: Spontaneous
  Country: US (occurrence: US)
  Receive Date: 20191107
  Receipt Date: 20191107
  Transmission Date: 20200122
  Serious: Yes (Hospitalization, Other)
  Sender: FDA-Public Use
  Company Number: US-SA-2019SA301451

PATIENT
  Age: 32 Year
  Sex: Female

DRUGS (1)
  1. ALEMTUZUMAB [Suspect]
     Active Substance: ALEMTUZUMAB
     Indication: RELAPSING-REMITTING MULTIPLE SCLEROSIS
     Dosage: UNK

REACTIONS (4)
  - Headache [Recovering/Resolving]
  - Dizziness [Recovering/Resolving]
  - Autoimmune haemolytic anaemia [Recovering/Resolving]
  - Fatigue [Recovering/Resolving]
